FAERS Safety Report 10047904 (Version 6)
Quarter: 2014Q3

REPORT INFORMATION
  Report Type: Report from Study
  Country: US (occurrence: US)
  Receive Date: 20140331
  Receipt Date: 20140903
  Transmission Date: 20150326
  Serious: Yes (Hospitalization, Other)
  Sender: FDA-Public Use
  Company Number: US-BAXTER-2014BAX015176

PATIENT
  Age: 50 Year
  Sex: Female
  Weight: 102 kg

DRUGS (7)
  1. GAMMAGARD LIQUID [Suspect]
     Active Substance: HUMAN IMMUNOGLOBULIN G
     Indication: IMMUNODEFICIENCY COMMON VARIABLE
     Route: 042
     Dates: start: 20140310, end: 20140310
  2. GAMMAGARD LIQUID [Suspect]
     Active Substance: HUMAN IMMUNOGLOBULIN G
     Route: 042
     Dates: start: 20140421, end: 20140421
  3. GAMMAGARD LIQUID [Suspect]
     Active Substance: HUMAN IMMUNOGLOBULIN G
     Dosage: IN 600 ML, EVERY 4 WEEKS
     Route: 042
     Dates: start: 20140120, end: 20140120
  4. GAMMAGARD LIQUID [Suspect]
     Active Substance: HUMAN IMMUNOGLOBULIN G
     Indication: IMMUNODEFICIENCY COMMON VARIABLE
     Route: 058
     Dates: start: 20140821
  5. GAMMAGARD LIQUID [Suspect]
     Active Substance: HUMAN IMMUNOGLOBULIN G
     Dosage: IN 600 ML, EVERY 4 WEEKS
     Route: 042
  6. GAMMAGARD LIQUID [Suspect]
     Active Substance: HUMAN IMMUNOGLOBULIN G
     Dosage: IN 600 ML, EVERY 4 WEEKS
     Route: 042
     Dates: start: 20140217, end: 20140217
  7. GAMMAGARD LIQUID [Suspect]
     Active Substance: HUMAN IMMUNOGLOBULIN G
     Dosage: EVERY 3-4 WEEKS
     Route: 042
     Dates: start: 20140120, end: 20140120

REACTIONS (22)
  - Arthralgia [Not Recovered/Not Resolved]
  - Feeling hot [Unknown]
  - Musculoskeletal chest pain [Recovered/Resolved]
  - Sinusitis [Recovering/Resolving]
  - Memory impairment [Not Recovered/Not Resolved]
  - Rash [Recovering/Resolving]
  - Dizziness [Recovered/Resolved]
  - Asthma [Not Recovered/Not Resolved]
  - Bronchospasm [Recovering/Resolving]
  - Chills [Not Recovered/Not Resolved]
  - Gait disturbance [Recovering/Resolving]
  - Pain [Recovering/Resolving]
  - Hyperhidrosis [Unknown]
  - Fatigue [Recovering/Resolving]
  - Urticaria [Not Recovered/Not Resolved]
  - Muscular weakness [Recovering/Resolving]
  - Nausea [Recovered/Resolved]
  - Hyponatraemia [Recovering/Resolving]
  - Unevaluable event [Not Recovered/Not Resolved]
  - Pneumonia [Recovered/Resolved]
  - Influenza [Recovered/Resolved]
  - Adrenal insufficiency [Recovering/Resolving]

NARRATIVE: CASE EVENT DATE: 201401
